FAERS Safety Report 7762007-6 (Version None)
Quarter: 2011Q3

REPORT INFORMATION
  Report Type: 
  Country: None (occurrence: None)
  Receive Date: 20110920
  Receipt Date: 20110907
  Transmission Date: 20111222
  Serious: Yes (Hospitalization)
  Sender: FDA-Public Use
  Company Number: BE-ELI_LILLY_AND_COMPANY-BE201104002165

PATIENT
  Sex: Female

DRUGS (3)
  1. CORTISONE ACETATE [Concomitant]
  2. FORTEO [Suspect]
     Dosage: UNK
     Dates: start: 20100622
  3. FORTEO [Suspect]
     Dosage: UNK
     Dates: start: 20110124, end: 20110310

REACTIONS (3)
  - PAIN IN EXTREMITY [None]
  - ARTHROPATHY [None]
  - HERPES ZOSTER [None]
